FAERS Safety Report 14699283 (Version 1)
Quarter: 2018Q1

REPORT INFORMATION
  Report Type: Spontaneous
  Country: US (occurrence: US)
  Receive Date: 20180328
  Receipt Date: 20180328
  Transmission Date: 20180509
  Serious: Yes (Hospitalization)
  Sender: FDA-Public Use
  Company Number: None

PATIENT
  Age: 71 Year
  Sex: Male
  Weight: 81.56 kg

DRUGS (1)
  1. METFORMIN [Suspect]
     Active Substance: METFORMIN HYDROCHLORIDE
     Indication: DIABETES MELLITUS
     Route: 048
     Dates: start: 20180215, end: 20180305

REACTIONS (6)
  - Hyperkalaemia [None]
  - Gastroenteritis [None]
  - Hyperglycaemia [None]
  - Dizziness [None]
  - Hypotension [None]
  - Metabolic acidosis [None]

NARRATIVE: CASE EVENT DATE: 20180305
